FAERS Safety Report 24010081 (Version 1)
Quarter: 2024Q2

REPORT INFORMATION
  Report Type: Spontaneous
  Country: US (occurrence: US)
  Receive Date: 20240625
  Receipt Date: 20240625
  Transmission Date: 20240716
  Serious: No
  Sender: FDA-Public Use
  Company Number: US-009507513-2406USA004660

PATIENT
  Sex: Female

DRUGS (1)
  1. KEYTRUDA [Suspect]
     Active Substance: PEMBROLIZUMAB
     Dosage: UNK
     Dates: start: 2023

REACTIONS (3)
  - Dizziness [Unknown]
  - Lymphadenopathy [Unknown]
  - Nausea [Unknown]

NARRATIVE: CASE EVENT DATE: 20240101
